FAERS Safety Report 20355858 (Version 4)
Quarter: 2023Q1

REPORT INFORMATION
  Report Type: Spontaneous
  Country: JP (occurrence: None)
  Receive Date: 20220120
  Receipt Date: 20230302
  Transmission Date: 20230417
  Serious: Yes (Death, Life-Threatening, Hospitalization, Other)
  Sender: FDA-Public Use
  Company Number: 2022A030118

PATIENT
  Age: 66 Year
  Sex: Male
  Weight: 56 kg

DRUGS (12)
  1. IMFINZI [Suspect]
     Active Substance: DURVALUMAB
     Indication: Non-small cell lung cancer
     Route: 041
     Dates: start: 20210601, end: 20210629
  2. LIPITOR [Concomitant]
     Active Substance: ATORVASTATIN CALCIUM
     Indication: Hyperlipidaemia
     Dosage: DOSE UNKNOWN
     Route: 065
  3. ISOTONIC SODIUM CHLORIDE SOLUTION [Concomitant]
     Active Substance: SODIUM CHLORIDE
     Dosage: 50 ML X 12 BOTTLES
     Route: 042
     Dates: start: 20210406
  4. ISOTONIC SODIUM CHLORIDE SOLUTION [Concomitant]
     Active Substance: SODIUM CHLORIDE
     Route: 042
     Dates: start: 20210601, end: 20211030
  5. ISOTONIC SODIUM CHLORIDE SOLUTION [Concomitant]
     Active Substance: SODIUM CHLORIDE
     Dosage: (TOTAL DOSE: 39 BAGS)
     Route: 042
     Dates: start: 20210413, end: 20210507
  6. VONOPRAZAN FUMARATE [Concomitant]
     Active Substance: VONOPRAZAN FUMARATE
     Route: 048
     Dates: start: 20210408, end: 20211030
  7. MAGNESIUM OXIDE [Concomitant]
     Active Substance: MAGNESIUM OXIDE
     Dosage: AFTER EACH MEALS, TOTAL DOSE: 801 TABLETS
     Route: 048
     Dates: start: 20210409, end: 20211030
  8. DEXTROMETHORPHAN HYDROBROMIDE [Concomitant]
     Active Substance: DEXTROMETHORPHAN HYDROBROMIDE
     Dosage: AFTER EACH MEALS, TOTAL DOSE: 600 TABLETS
     Route: 048
     Dates: start: 20210414, end: 20211030
  9. LUNESTA [Concomitant]
     Active Substance: ESZOPICLONE
     Dosage: AS REQUIRED, WHEN SLEEPLESSNESS, TOTAL DOSE: 35 TABLETS
     Route: 048
     Dates: start: 20210416, end: 20210805
  10. ATORVASTATIN OD [Concomitant]
     Dosage: AFTER BREAKFAST, TOTAL DOSE: 71 TABLETS
     Route: 048
     Dates: start: 20210531, end: 20210809
  11. ACETAMINOPHEN [Concomitant]
     Active Substance: ACETAMINOPHEN
     Dosage: AS REQUIRED, AT THE TIME OF PYREXIA, TOTAL DOSE: 71 TABLETS
     Route: 048
     Dates: start: 20210601, end: 20210613
  12. LOXOPROFEN SODIUM DIHYDRATE [Concomitant]
     Active Substance: LOXOPROFEN SODIUM DIHYDRATE
     Dosage: AFTER EACH MEALS, TOTAL DOSE: 345 TABLETS
     Route: 048

REACTIONS (5)
  - Pneumothorax [Fatal]
  - Infectious pleural effusion [Fatal]
  - Radiation pneumonitis [Fatal]
  - Interstitial lung disease [Not Recovered/Not Resolved]
  - Silent thyroiditis [Not Recovered/Not Resolved]

NARRATIVE: CASE EVENT DATE: 20210615
